FAERS Safety Report 23225821 (Version 10)
Quarter: 2025Q3

REPORT INFORMATION
  Report Type: Spontaneous
  Country: US (occurrence: US)
  Receive Date: 20231124
  Receipt Date: 20250731
  Transmission Date: 20251021
  Serious: Yes (Other)
  Sender: SANOFI AVENTIS
  Company Number: US-SA-SAC20231121000315

PATIENT
  Age: 67 Year
  Sex: Male

DRUGS (3)
  1. DUPIXENT [Suspect]
     Active Substance: DUPILUMAB
     Indication: Eczema
     Route: 058
     Dates: start: 20230929, end: 20230929
  2. DUPIXENT [Suspect]
     Active Substance: DUPILUMAB
     Indication: Dermatitis atopic
     Dosage: 300 MG, QOW
     Route: 058
     Dates: start: 202310
  3. OTEZLA [Concomitant]
     Active Substance: APREMILAST

REACTIONS (20)
  - Psoriatic arthropathy [Unknown]
  - Swelling [Not Recovered/Not Resolved]
  - Condition aggravated [Not Recovered/Not Resolved]
  - Abdominal discomfort [Recovered/Resolved]
  - Nausea [Recovered/Resolved]
  - Cluster headache [Not Recovered/Not Resolved]
  - Injection site discomfort [Unknown]
  - Anxiety [Unknown]
  - Hypertension [Recovering/Resolving]
  - Pain [Not Recovered/Not Resolved]
  - Hypoaesthesia [Recovered/Resolved]
  - Diarrhoea [Recovered/Resolved]
  - Toothache [Recovered/Resolved]
  - Gastritis [Unknown]
  - Myalgia [Recovered/Resolved]
  - Pain in extremity [Unknown]
  - Pruritus [Not Recovered/Not Resolved]
  - Arthralgia [Recovered/Resolved]
  - Inflammation [Unknown]
  - Therapeutic response shortened [Unknown]

NARRATIVE: CASE EVENT DATE: 20230101
